FAERS Safety Report 16078892 (Version 2)
Quarter: 2019Q1

REPORT INFORMATION
  Report Type: Spontaneous
  Country: CZ (occurrence: CZ)
  Receive Date: 20190315
  Receipt Date: 20190319
  Transmission Date: 20190418
  Serious: Yes (Death, Life-Threatening, Hospitalization, Other)
  Sender: FDA-Public Use
  Company Number: CZ-ALLERGAN-1910688US

PATIENT
  Sex: Male

DRUGS (1)
  1. ESCITALOPRAM OXALATE - BP [Suspect]
     Active Substance: ESCITALOPRAM OXALATE
     Indication: SUICIDE ATTEMPT
     Dosage: OVERDOSE: 250 MG
     Route: 048

REACTIONS (8)
  - Serotonin syndrome [Unknown]
  - Intentional overdose [Unknown]
  - Ventricular fibrillation [Recovered/Resolved]
  - Cardiac fibrillation [Recovered/Resolved]
  - Product use in unapproved indication [Unknown]
  - Suicide attempt [Unknown]
  - Brain death [Fatal]
  - Toxicity to various agents [Recovered/Resolved]
